FAERS Safety Report 5698432-7 (Version None)
Quarter: 2008Q2

REPORT INFORMATION
  Report Type: 
  Country: None (occurrence: None)
  Receive Date: 20080403
  Receipt Date: 20080318
  Transmission Date: 20081010
  Serious: Yes (Hospitalization)
  Sender: FDA-Public Use
  Company Number: 2008JP001416

PATIENT
  Age: 33 Year
  Sex: Male
  Weight: 67 kg

DRUGS (6)
  1. TACROLIMUS [Suspect]
     Indication: RHEUMATOID ARTHRITIS
     Dosage: 3 MG, ORAL; 2 MG, ORAL
     Route: 048
     Dates: start: 20060211, end: 20060224
  2. TACROLIMUS [Suspect]
     Indication: RHEUMATOID ARTHRITIS
     Dosage: 3 MG, ORAL; 2 MG, ORAL
     Route: 048
     Dates: start: 20060225
  3. PREDNISOLONE [Concomitant]
  4. MOBIC [Concomitant]
  5. AZULFIDINE EN-TABS [Concomitant]
  6. RHEUMATREX [Concomitant]

REACTIONS (1)
  - CROHN'S DISEASE [None]
